FAERS Safety Report 7828511-7 (Version None)
Quarter: 2011Q4

REPORT INFORMATION
  Report Type: 
  Country: None (occurrence: None)
  Receive Date: 20111020
  Receipt Date: 20111020
  Transmission Date: 20120403
  Serious: Yes (Hospitalization)
  Sender: FDA-Public Use
  Company Number: None

PATIENT
  Age: 57 Month
  Sex: Female
  Weight: 76 kg

DRUGS (8)
  1. FLUDROCORTISONE ACETATE [Concomitant]
     Route: 048
  2. MIDODRINE HYDROCHLORIDE [Concomitant]
     Route: 048
  3. WARFARIN SODIUM [Suspect]
     Dosage: 7.5 MG
     Route: 048
  4. FAMOTIDINE [Concomitant]
     Route: 048
  5. TOPIRAMATE [Concomitant]
     Route: 048
  6. LORAZEPAM [Concomitant]
     Route: 048
  7. POTASSIUM CHLORIDE [Concomitant]
     Route: 048
  8. SERTRALINE HYDROCHLORIDE [Concomitant]
     Route: 048

REACTIONS (3)
  - INTERNATIONAL NORMALISED RATIO INCREASED [None]
  - CEREBRAL HAEMORRHAGE [None]
  - FALL [None]
